FAERS Safety Report 8737645 (Version 10)
Quarter: 2013Q3

REPORT INFORMATION
  Report Type: Spontaneous
  Country: US (occurrence: US)
  Receive Date: 20120822
  Receipt Date: 20130808
  Transmission Date: 20140515
  Serious: Yes (Hospitalization, Other)
  Sender: FDA-Public Use
  Company Number: US-009507513-1208USA002073

PATIENT
  Sex: Female
  Weight: 73.16 kg

DRUGS (12)
  1. FOSAMAX [Suspect]
     Indication: OSTEOPENIA
     Dosage: 70 MG, QW
     Route: 048
     Dates: start: 2004, end: 200602
  2. FOSAMAX [Suspect]
     Indication: OSTEOPOROSIS
     Dosage: 70 MG, QW
     Route: 048
     Dates: start: 200608, end: 200806
  3. FOSAMAX PLUS D [Suspect]
     Dosage: 70 MG/2800, QW
     Route: 048
  4. ALENDRONATE SODIUM [Suspect]
     Indication: OSTEOPOROSIS
     Dosage: 70 MG, QW
     Route: 048
     Dates: start: 20080628
  5. ALENDRONATE SODIUM (+) CHOLECALCIFEROL [Suspect]
     Dosage: 70MG-2800IU,QW
     Route: 048
  6. ACTONEL [Suspect]
     Indication: OSTEOPOROSIS
     Dosage: 35 MG, QW
     Route: 048
     Dates: start: 2004, end: 200803
  7. ONE-A-DAY ESSENTIAL VITAMINS [Concomitant]
     Indication: VITAMIN SUPPLEMENTATION
     Dosage: UNK UNK, QD
     Route: 048
     Dates: start: 2004
  8. CALCIUM (UNSPECIFIED) [Concomitant]
     Indication: ROUTINE HEALTH MAINTENANCE
     Dosage: UNK, QD
     Route: 048
     Dates: start: 2004
  9. VITAMIN D (UNSPECIFIED) [Concomitant]
     Indication: ROUTINE HEALTH MAINTENANCE
     Dosage: UNK, QD
     Route: 048
     Dates: start: 2004
  10. SINGULAIR [Concomitant]
     Indication: ASTHMA
     Dosage: 10 MG, QD
     Route: 048
     Dates: start: 2002
  11. LEVOTHYROXINE SODIUM [Concomitant]
     Indication: THYROID DISORDER
     Dosage: 88 MICROGRAM, QD
     Dates: start: 1994
  12. CORTICOSTEROIDS (UNSPECIFIED) [Concomitant]
     Dosage: UNK
     Dates: start: 2002

REACTIONS (29)
  - Intramedullary rod insertion [Unknown]
  - Intramedullary rod insertion [Unknown]
  - Nephrolithiasis [Unknown]
  - Fall [Unknown]
  - Anaemia [Recovered/Resolved]
  - Asthma [Unknown]
  - Femur fracture [Recovered/Resolved]
  - Femur fracture [Recovered/Resolved]
  - Female sterilisation [Unknown]
  - Adenoidectomy [Unknown]
  - Tonsillectomy [Unknown]
  - Pilonidal cyst [Unknown]
  - Hypertension [Unknown]
  - Blood cholesterol increased [Unknown]
  - Low turnover osteopathy [Unknown]
  - Chronic obstructive pulmonary disease [Unknown]
  - Haemorrhoids [Unknown]
  - Intervertebral disc protrusion [Unknown]
  - Osteopetrosis [Unknown]
  - Lumbar spinal stenosis [Unknown]
  - Facet joint syndrome [Unknown]
  - Hypertrophy [Unknown]
  - Intervertebral disc protrusion [Unknown]
  - Pain in extremity [Unknown]
  - Pain in extremity [Unknown]
  - Arthralgia [Unknown]
  - Back pain [Not Recovered/Not Resolved]
  - Arthralgia [Unknown]
  - Back pain [Unknown]
